FAERS Safety Report 25312786 (Version 1)
Quarter: 2025Q2

REPORT INFORMATION
  Report Type: Spontaneous
  Country: US (occurrence: None)
  Receive Date: 20250513
  Receipt Date: 20250513
  Transmission Date: 20250717
  Serious: Yes (Hospitalization)
  Sender: FDA-CTU
  Company Number: None

PATIENT
  Age: 90 Year
  Sex: Male
  Weight: 97 kg

DRUGS (1)
  1. EMPAGLIFLOZIN [Suspect]
     Active Substance: EMPAGLIFLOZIN
     Indication: Diabetes mellitus
     Dosage: FREQUENCY : DAILY;?
     Route: 048

REACTIONS (4)
  - Acute kidney injury [None]
  - Urinary tract infection [None]
  - Urosepsis [None]
  - Therapy cessation [None]

NARRATIVE: CASE EVENT DATE: 20240623
